FAERS Safety Report 13603309 (Version 1)
Quarter: 2017Q2

REPORT INFORMATION
  Report Type: Spontaneous
  Country: FR (occurrence: FR)
  Receive Date: 20170601
  Receipt Date: 20170601
  Transmission Date: 20170830
  Serious: Yes (Other)
  Sender: FDA-Public Use
  Company Number: FR-MYLANLABS-2017M1026562

PATIENT

DRUGS (2)
  1. OLANZAPINE MYLAN [Suspect]
     Active Substance: OLANZAPINE
     Indication: OBSESSIVE-COMPULSIVE DISORDER
     Dosage: 1 DF, QD
     Dates: start: 2007, end: 20170520
  2. SERESTA [Suspect]
     Active Substance: OXAZEPAM
     Indication: OBSESSIVE-COMPULSIVE DISORDER
     Dosage: 5 MG, BID
     Dates: start: 2007

REACTIONS (4)
  - Insomnia [Unknown]
  - Paraesthesia [Unknown]
  - Withdrawal syndrome [Unknown]
  - Constipation [Unknown]

NARRATIVE: CASE EVENT DATE: 20170524
